FAERS Safety Report 10025475 (Version 1)
Quarter: 2014Q1

REPORT INFORMATION
  Report Type: Spontaneous
  Country: US (occurrence: US)
  Receive Date: 20140320
  Receipt Date: 20140320
  Transmission Date: 20141002
  Serious: No
  Sender: FDA-Public Use
  Company Number: US-TEVA-469312USA

PATIENT
  Sex: Female
  Weight: 68.1 kg

DRUGS (6)
  1. NUVIGIL [Suspect]
     Indication: FATIGUE
     Route: 048
     Dates: start: 2010
  2. THYROID [Concomitant]
     Indication: THYROID DISORDER
  3. VITAMIN B12 NOS [Concomitant]
  4. VITAMIN D NOS [Concomitant]
  5. VITAMIN C [Concomitant]
  6. PROLIA [Concomitant]
     Indication: OSTEOPOROSIS

REACTIONS (6)
  - Fatigue [Not Recovered/Not Resolved]
  - Asthenia [Not Recovered/Not Resolved]
  - Asthenia [Not Recovered/Not Resolved]
  - Osteoporosis [Not Recovered/Not Resolved]
  - Body height decreased [Not Recovered/Not Resolved]
  - Intervertebral disc disorder [Not Recovered/Not Resolved]
